FAERS Safety Report 12503108 (Version 1)
Quarter: 2016Q2

REPORT INFORMATION
  Report Type: Spontaneous
  Country: US (occurrence: None)
  Receive Date: 20160627
  Receipt Date: 20160627
  Transmission Date: 20160815
  Serious: Yes (Other)
  Sender: FDA-Public Use
  Company Number: None

PATIENT
  Age: 52 Year
  Sex: Female
  Weight: 108.86 kg

DRUGS (24)
  1. GLIMEPRIDE [Concomitant]
     Active Substance: GLIMEPIRIDE
  2. CRESTOR [Concomitant]
     Active Substance: ROSUVASTATIN CALCIUM
  3. LANTUS [Concomitant]
     Active Substance: INSULIN GLARGINE
  4. KLOR-CON M10 (K-DUR 10MEQ CR) [Concomitant]
  5. BYSTOLIC [Concomitant]
     Active Substance: NEBIVOLOL HYDROCHLORIDE
  6. VITAMIN D2 [Concomitant]
     Active Substance: ERGOCALCIFEROL
  7. APIDRA [Concomitant]
     Active Substance: INSULIN GLULISINE
  8. METFORMIN (GLUCOPHAGE) [Concomitant]
  9. DYMISTA [Concomitant]
     Active Substance: AZELASTINE HYDROCHLORIDE\FLUTICASONE PROPIONATE
  10. MAGNESIUM [Concomitant]
     Active Substance: MAGNESIUM
  11. TURMERIC [Concomitant]
     Active Substance: TURMERIC
  12. BENTYL [Concomitant]
     Active Substance: DICYCLOMINE HYDROCHLORIDE
  13. TRIPLE VITAMIN C [Concomitant]
  14. TORSEMIDE. [Concomitant]
     Active Substance: TORSEMIDE
  15. ESTRADIOL. [Concomitant]
     Active Substance: ESTRADIOL
  16. STELARA [Concomitant]
     Active Substance: USTEKINUMAB
  17. UNITHROID [Concomitant]
     Active Substance: LEVOTHYROXINE SODIUM
  18. OMEPRAZOLE. [Concomitant]
     Active Substance: OMEPRAZOLE
  19. GLIMEPRIDE 4MG TAB QUALITEST PHARMACEUTICALS [Suspect]
     Active Substance: GLIMEPIRIDE
     Indication: DIABETES MELLITUS
     Route: 048
     Dates: start: 20160227, end: 20160525
  20. CLOPIDOGREL [Concomitant]
     Active Substance: CLOPIDOGREL BISULFATE
  21. OMEGA 3,6,9 [Concomitant]
  22. JARDIANCE [Concomitant]
     Active Substance: EMPAGLIFLOZIN
  23. TRIBENZOR [Concomitant]
     Active Substance: AMLODIPINE BESYLATE\HYDROCHLOROTHIAZIDE\OLMESARTAN MEDOXOMIL
  24. ZINC [Concomitant]
     Active Substance: ZINC\ZINC CHLORIDE

REACTIONS (1)
  - Blood glucose increased [None]

NARRATIVE: CASE EVENT DATE: 20160128
